FAERS Safety Report 16400708 (Version 1)
Quarter: 2019Q2

REPORT INFORMATION
  Report Type: Spontaneous
  Country: DK (occurrence: DK)
  Receive Date: 20190606
  Receipt Date: 20190606
  Transmission Date: 20190711
  Serious: Yes (Hospitalization)
  Sender: FDA-Public Use
  Company Number: DK-BAUSCH-BL-2019-016310

PATIENT
  Age: 51 Year
  Sex: Male

DRUGS (7)
  1. CORODIL [Concomitant]
     Indication: HYPERTENSION
  2. AMLODIPINE [Concomitant]
     Active Substance: AMLODIPINE BESYLATE
     Indication: HYPERTENSION
     Dates: start: 20160317
  3. CENTYL MITE MED KALIUMKLORID [Concomitant]
     Indication: HYPERTENSION
  4. LOPID [Concomitant]
     Active Substance: GEMFIBROZIL
     Indication: HYPERCHOLESTEROLAEMIA
     Dates: start: 20160316, end: 20161202
  5. METFORMIN [Concomitant]
     Active Substance: METFORMIN HYDROCHLORIDE
     Indication: TYPE 2 DIABETES MELLITUS
     Dates: start: 20160316
  6. METRONIDAZOLE. [Suspect]
     Active Substance: METRONIDAZOLE
     Indication: EMPHYSEMA
     Route: 065
     Dates: start: 20160606
  7. BIOCLAVID [Suspect]
     Active Substance: AMOXICILLIN\CLAVULANIC ACID
     Indication: EMPHYSEMA
     Route: 065
     Dates: start: 20160606

REACTIONS (1)
  - Hypomania [Unknown]

NARRATIVE: CASE EVENT DATE: 201606
